FAERS Safety Report 5278026-8 (Version None)
Quarter: 2007Q1

REPORT INFORMATION
  Report Type: 
  Country: None (occurrence: None)
  Receive Date: 20070321
  Receipt Date: 20070305
  Transmission Date: 20070707
  Serious: Yes (Death)
  Sender: FDA-Public Use
  Company Number: 2007JP000964

PATIENT
  Age: 20 Year
  Sex: Male
  Weight: 69.7 kg

DRUGS (13)
  1. FUNGUARD(MICAFUNGIN) INJECTION [Suspect]
     Indication: FUNGAL INFECTION
     Dosage: 100 MG,/D, IV DRIP
     Route: 041
     Dates: start: 20060709, end: 20060714
  2. PROGRAF [Concomitant]
  3. DIFLUCAN (FLUCONAZOLE) CAPSULE [Concomitant]
  4. OMEGACIN (BIAPENEM) INJECTION [Concomitant]
  5. CRAVIT (LEVOFLOXACIN) TABLET [Concomitant]
  6. BAKTAR (SULFAMETHOXAZOLE, TRIMETHOPRIM) TABLET [Concomitant]
  7. FIRSTCIN (CEFOZOPRAN HYDROCHLORIDE) INJECTION [Concomitant]
  8. MINOMYCIN (MINOCYCLINE HYDROCHLORIDE) FORMULATION UNKNOWN [Concomitant]
  9. VANCOMYCIN [Concomitant]
  10. SOLU-CORTEF (HYDROCORTISONE SODIUM SUCCINATE) INJECTION [Concomitant]
  11. NEUTROGIN (LENOGRASTIM) FORMULATION UNKNOWN [Concomitant]
  12. POLYGLOBIN (IMMUNOGLOBULIN HUMAN NORMAL, MALTOSE) INJECTION [Concomitant]
  13. METHOTREXATE (METHOTREXATE SODIUM) INJECTION [Concomitant]

REACTIONS (1)
  - GRAFT VERSUS HOST DISEASE [None]
